FAERS Safety Report 8572672-1 (Version None)
Quarter: 2012Q3

REPORT INFORMATION
  Report Type: 
  Country: None (occurrence: None)
  Receive Date: 20120806
  Receipt Date: 20120727
  Transmission Date: 20120928
  Serious: Yes (Hospitalization, Other)
  Sender: FDA-Public Use
  Company Number: GB-ASTRAZENECA-2012SE53533

PATIENT
  Age: 81 Year
  Sex: Male
  Weight: 80 kg

DRUGS (6)
  1. ATENOLOL [Suspect]
     Route: 048
  2. DICLOFENAC SODIUM [Suspect]
     Indication: PAIN
     Route: 065
  3. ASPIRIN [Concomitant]
  4. CODEINE PHOSPHATE [Concomitant]
  5. FINASTERIDE [Concomitant]
  6. ACETAMINOPHEN [Concomitant]

REACTIONS (3)
  - TROPONIN I INCREASED [None]
  - RENAL FAILURE ACUTE [None]
  - BRADYCARDIA [None]
